FAERS Safety Report 22538128 (Version 1)
Quarter: 2023Q2

REPORT INFORMATION
  Report Type: Spontaneous
  Country: CN (occurrence: CN)
  Receive Date: 20230608
  Receipt Date: 20230608
  Transmission Date: 20230722
  Serious: Yes (Hospitalization)
  Sender: FDA-Public Use
  Company Number: CN-ABBVIE-5276217

PATIENT
  Age: 5 Day
  Sex: Female

DRUGS (1)
  1. KALETRA [Suspect]
     Active Substance: LOPINAVIR\RITONAVIR
     Indication: Prophylaxis against HIV infection
     Dosage: 1 MILLICURIES, 200/50
     Route: 048
     Dates: start: 20230518, end: 20230523

REACTIONS (3)
  - Renal impairment [Recovering/Resolving]
  - Rash [Recovering/Resolving]
  - Blood creatinine increased [Recovering/Resolving]

NARRATIVE: CASE EVENT DATE: 20230523
